FAERS Safety Report 16624580 (Version 1)
Quarter: 2019Q3

REPORT INFORMATION
  Report Type: Spontaneous
  Country: US (occurrence: US)
  Receive Date: 20190724
  Receipt Date: 20190724
  Transmission Date: 20191004
  Serious: No
  Sender: FDA-Public Use
  Company Number: US-DRREDDYS-USA/USA/19/0112201

PATIENT
  Sex: Male
  Weight: 78.75 kg

DRUGS (1)
  1. NICOTINE. [Suspect]
     Active Substance: NICOTINE
     Indication: EX-TOBACCO USER
     Route: 062
     Dates: start: 20190719

REACTIONS (2)
  - Abnormal dreams [Not Recovered/Not Resolved]
  - Treatment noncompliance [Not Recovered/Not Resolved]
